FAERS Safety Report 23490200 (Version 1)
Quarter: 2024Q1

REPORT INFORMATION
  Report Type: Spontaneous
  Country: US (occurrence: None)
  Receive Date: 20240206
  Receipt Date: 20240206
  Transmission Date: 20240410
  Serious: No
  Sender: FDA-Public Use
  Company Number: US-ROCHE-3452591

PATIENT
  Sex: Male

DRUGS (8)
  1. XOLAIR [Suspect]
     Active Substance: OMALIZUMAB
     Indication: Urticaria
     Dosage: FIRST INJECTION ON 14/SEP/2023, HIS SECOND ON 03/OCT/2023, AND HIS THIRD INJECTION ON 02/NOV/2023.
     Route: 065
     Dates: start: 20230914
  2. TRAMADOL [Concomitant]
     Active Substance: TRAMADOL\TRAMADOL HYDROCHLORIDE
     Indication: Pain
     Dates: start: 20231009, end: 20231102
  3. CYCLOBENZAPRINE [Concomitant]
     Active Substance: CYCLOBENZAPRINE
     Indication: Pain
     Dates: start: 20231009, end: 20231102
  4. TYLENOL [Concomitant]
     Active Substance: ACETAMINOPHEN
     Indication: Pain
     Dates: start: 20231009, end: 20231102
  5. ETODOLAC [Concomitant]
     Active Substance: ETODOLAC
     Indication: Arthritis
  6. GABAPENTIN [Concomitant]
     Active Substance: GABAPENTIN
     Indication: Arthritis
     Route: 048
  7. LISINOPRIL [Concomitant]
     Active Substance: LISINOPRIL
     Indication: Blood pressure increased
     Route: 048
  8. SIMVASTATIN [Concomitant]
     Active Substance: SIMVASTATIN
     Route: 048

REACTIONS (6)
  - Asthenia [Unknown]
  - Fatigue [Unknown]
  - Heart rate increased [Unknown]
  - Dizziness [Unknown]
  - Malaise [Unknown]
  - Flatulence [Unknown]

NARRATIVE: CASE EVENT DATE: 20231102
